FAERS Safety Report 5501377-6 (Version None)
Quarter: 2007Q4

REPORT INFORMATION
  Report Type: 
  Country: None (occurrence: None)
  Receive Date: 20071018
  Receipt Date: 20061218
  Transmission Date: 20080405
  Serious: Yes (Other)
  Sender: FDA-Public Use
  Company Number: 2006154813

PATIENT
  Age: 58 Year
  Sex: Female
  Weight: 65.8 kg

DRUGS (13)
  1. NEURONTIN [Suspect]
     Indication: NEURALGIA
     Dates: start: 20061201
  2. NAPROXEN [Concomitant]
  3. AGGRENOX [Concomitant]
  4. PREVACID [Concomitant]
  5. CYMBALTA [Concomitant]
  6. ADDERALL 10 [Concomitant]
  7. TOPAMAX [Concomitant]
  8. CLONAZEPAM [Concomitant]
  9. REQUIP [Concomitant]
  10. ALL OTHER THERAPEUTIC PRODUCTS (ALL OTHER THERAPEUTIC PRODUCTS) [Concomitant]
  11. HYDROCODONE BITARTRATE [Concomitant]
  12. MUCINEX [Concomitant]
  13. CALCIUM (CALCIUM) [Concomitant]

REACTIONS (5)
  - CEREBROVASCULAR ACCIDENT [None]
  - CONFUSIONAL STATE [None]
  - FALL [None]
  - LOSS OF CONSCIOUSNESS [None]
  - SOMNOLENCE [None]
